FAERS Safety Report 16781413 (Version 4)
Quarter: 2022Q3

REPORT INFORMATION
  Report Type: Spontaneous
  Country: US (occurrence: None)
  Receive Date: 20190906
  Receipt Date: 20220825
  Transmission Date: 20221026
  Serious: Yes (Death, Other)
  Sender: FDA-Public Use
  Company Number: 2019SF26407

PATIENT
  Age: 59 Year
  Sex: Male
  Weight: 90.7 kg

DRUGS (36)
  1. NEXIUM [Suspect]
     Active Substance: ESOMEPRAZOLE MAGNESIUM
     Indication: Gastrooesophageal reflux disease
     Route: 048
     Dates: start: 200510, end: 201610
  2. NEXIUM [Suspect]
     Active Substance: ESOMEPRAZOLE MAGNESIUM
     Indication: Gastrooesophageal reflux disease
     Route: 048
     Dates: start: 2011, end: 2015
  3. NEXIUM [Suspect]
     Active Substance: ESOMEPRAZOLE MAGNESIUM
     Indication: Gastrooesophageal reflux disease
     Route: 048
     Dates: start: 20110103
  4. PRILOSEC [Suspect]
     Active Substance: OMEPRAZOLE MAGNESIUM
     Indication: Gastrooesophageal reflux disease
     Route: 048
     Dates: start: 200510, end: 201610
  5. PRILOSEC [Suspect]
     Active Substance: OMEPRAZOLE MAGNESIUM
     Indication: Gastrooesophageal reflux disease
     Route: 048
     Dates: start: 2010, end: 2011
  6. PREVACID [Suspect]
     Active Substance: LANSOPRAZOLE
     Indication: Gastrooesophageal reflux disease
     Route: 065
     Dates: start: 200510, end: 201610
  7. PREVACID [Suspect]
     Active Substance: LANSOPRAZOLE
     Indication: Gastrooesophageal reflux disease
     Route: 065
     Dates: start: 2005, end: 2006
  8. PREVACID [Suspect]
     Active Substance: LANSOPRAZOLE
     Indication: Gastrooesophageal reflux disease
     Route: 065
     Dates: start: 20051019
  9. SIMVASTATIN [Concomitant]
     Active Substance: SIMVASTATIN
     Indication: Hypertension
     Dates: start: 2014
  10. METOPROLOL [Concomitant]
     Active Substance: METOPROLOL
     Indication: Hypertension
     Dates: start: 2012, end: 2014
  11. LOW-DOSE ASPIRIN [Concomitant]
     Active Substance: ASPIRIN
     Indication: Cardiac disorder
  12. OXYCODONE [Concomitant]
     Active Substance: OXYCODONE
  13. DULOXETINE [Concomitant]
     Active Substance: DULOXETINE
  14. ISOSORBIDE MONONITRATE [Concomitant]
     Active Substance: ISOSORBIDE MONONITRATE
  15. FENOFIBRATE [Concomitant]
     Active Substance: FENOFIBRATE
  16. NIFEDIPINE [Concomitant]
     Active Substance: NIFEDIPINE
  17. VALCYTE [Concomitant]
     Active Substance: VALGANCICLOVIR HYDROCHLORIDE
  18. TEMAZEPAM [Concomitant]
     Active Substance: TEMAZEPAM
  19. NOVOLOG [Concomitant]
     Active Substance: INSULIN ASPART
  20. NIFEDIAC CC [Concomitant]
     Active Substance: NIFEDIPINE
  21. HYDROCORTISONE [Concomitant]
     Active Substance: HYDROCORTISONE
  22. TACROLIMUS [Concomitant]
     Active Substance: TACROLIMUS
  23. TOPROL XL [Concomitant]
     Active Substance: METOPROLOL SUCCINATE
  24. NITROGLYCERIN [Concomitant]
     Active Substance: NITROGLYCERIN
  25. LYRICA [Concomitant]
     Active Substance: PREGABALIN
  26. LANTUS [Concomitant]
     Active Substance: INSULIN GLARGINE
  27. HYDROXYZINE [Concomitant]
     Active Substance: HYDROXYZINE HYDROCHLORIDE
  28. CYMBALTA [Concomitant]
     Active Substance: DULOXETINE HYDROCHLORIDE
  29. GABAPENTIN [Concomitant]
     Active Substance: GABAPENTIN
  30. ALPRAZOLAM [Concomitant]
     Active Substance: ALPRAZOLAM
  31. LISINOPRIL [Concomitant]
     Active Substance: LISINOPRIL
  32. LIPITOR [Concomitant]
     Active Substance: ATORVASTATIN CALCIUM
  33. IMDUR [Concomitant]
     Active Substance: ISOSORBIDE MONONITRATE
  34. PROGRAF [Concomitant]
     Active Substance: TACROLIMUS
  35. HUMALOG [Concomitant]
     Active Substance: INSULIN LISPRO
  36. DOCUSATE SODIUM [Concomitant]
     Active Substance: DOCUSATE SODIUM

REACTIONS (8)
  - Sepsis [Fatal]
  - Wound [Fatal]
  - Cerebrovascular accident [Fatal]
  - Acute kidney injury [Unknown]
  - Chronic kidney disease [Unknown]
  - End stage renal disease [Unknown]
  - Hypoparathyroidism secondary [Unknown]
  - Nephrogenic anaemia [Unknown]

NARRATIVE: CASE EVENT DATE: 20130101
